FAERS Safety Report 19241893 (Version 2)
Quarter: 2024Q1

REPORT INFORMATION
  Report Type: Report from Study
  Country: GB (occurrence: GB)
  Receive Date: 20210511
  Receipt Date: 20240105
  Transmission Date: 20240410
  Serious: Yes (Other)
  Sender: FDA-Public Use
  Company Number: None

PATIENT
  Age: 54 Year
  Sex: Female

DRUGS (14)
  1. HUMAN IMMUNOGLOBULIN G [Suspect]
     Active Substance: HUMAN IMMUNOGLOBULIN G
     Indication: Product used for unknown indication
     Route: 042
  2. ECULIZUMAB [Suspect]
     Active Substance: ECULIZUMAB
     Indication: Paroxysmal nocturnal haemoglobinuria
     Dosage: MASKED
     Route: 042
     Dates: start: 20100607
  3. ASPIRIN [Concomitant]
     Active Substance: ASPIRIN
     Indication: Product used for unknown indication
     Dosage: MASKED
     Route: 065
  4. DEFERIPRONE [Concomitant]
     Active Substance: DEFERIPRONE
     Indication: Product used for unknown indication
     Dosage: MASKED
     Route: 065
  5. FOLIC ACID [Concomitant]
     Active Substance: FOLIC ACID
     Indication: Product used for unknown indication
     Dosage: MASKED
     Route: 065
  6. FORMOTEROL FUMARATE DIHYDRATE/BECLOMETASONE DIPROPIONATE [Concomitant]
     Indication: Product used for unknown indication
     Route: 065
  7. KETOPROFEN [Concomitant]
     Active Substance: KETOPROFEN
     Indication: Product used for unknown indication
     Dosage: MASKED
     Route: 065
  8. OMEPRAZOLE MAGNESIUM/OMEPRAZOLE SODIUM FOR INJECTION/OMEPRAZOLE [Concomitant]
     Indication: Product used for unknown indication
     Dosage: MASKED
     Route: 065
  9. MORPHINE [Concomitant]
     Active Substance: MORPHINE
     Indication: Product used for unknown indication
     Dosage: MASKED
     Route: 065
  10. MORPHINE SULPHATE/MORPHINE SULFATE/MORPHINE [Concomitant]
     Indication: Product used for unknown indication
     Dosage: MASKED
     Route: 065
  11. PROCHLORPERAZINE MESILATE/PROCHLORPERAZINE/PROCHLORPERAZINE MALEATE/PR [Concomitant]
     Indication: Product used for unknown indication
     Dosage: MASKED
     Route: 065
  12. SARS-COV-2 [Suspect]
     Active Substance: SARS-COV-2
     Indication: COVID-19 immunisation
     Dosage: MASKED
     Route: 065
  13. INFLUENZA VIRUS VACCINE [Suspect]
     Active Substance: INFLUENZA VIRUS VACCINE
     Indication: Immunisation
     Route: 065
  14. MORPHINE SULPHATE/MORPHINE SULFATE [Concomitant]
     Indication: Dysphagia
     Dosage: MASKED
     Route: 065

REACTIONS (30)
  - Bronchiectasis [Not Recovered/Not Resolved]
  - Device issue [Not Recovered/Not Resolved]
  - Dysphagia [Not Recovered/Not Resolved]
  - Pain [Not Recovered/Not Resolved]
  - Incorrect product administration duration [Unknown]
  - Malaise [Recovering/Resolving]
  - Oesophageal spasm [Not Recovered/Not Resolved]
  - Wound [Not Recovered/Not Resolved]
  - Contusion [Not Recovered/Not Resolved]
  - Radiation oesophagitis [Unknown]
  - Oropharyngeal discomfort [Unknown]
  - Localised infection [Not Recovered/Not Resolved]
  - Poor venous access [Not Recovered/Not Resolved]
  - Dyspnoea exertional [Not Recovered/Not Resolved]
  - Dyspnoea [Not Recovered/Not Resolved]
  - Fatigue [Not Recovered/Not Resolved]
  - Arthralgia [Not Recovered/Not Resolved]
  - Headache [Not Recovered/Not Resolved]
  - Nausea [Unknown]
  - Bronchitis [Unknown]
  - Oropharyngeal pain [Not Recovered/Not Resolved]
  - Back pain [Not Recovered/Not Resolved]
  - Asthenia [Not Recovered/Not Resolved]
  - Lower respiratory tract infection [Unknown]
  - Postoperative wound infection [Not Recovered/Not Resolved]
  - Wound abscess [Unknown]
  - Scar [Unknown]
  - Productive cough [Unknown]
  - Discharge [Unknown]
  - Tooth infection [Unknown]

NARRATIVE: CASE EVENT DATE: 19991201
